FAERS Safety Report 21256557 (Version 2)
Quarter: 2022Q3

REPORT INFORMATION
  Report Type: Spontaneous
  Country: BR (occurrence: BR)
  Receive Date: 20220826
  Receipt Date: 20220903
  Transmission Date: 20221026
  Serious: Yes (Hospitalization, Other)
  Sender: FDA-Public Use
  Company Number: BR-BAXTER-2022BAX017871

PATIENT
  Age: 25 Year
  Sex: Female

DRUGS (2)
  1. IRON [Suspect]
     Active Substance: IRON
     Indication: Anaemia
     Dosage: SOLUTION FOR INJECTABLE DILUTION 20MG/ML, 2 AMPOULES DILUTED IN 200 ML OF SODIUM CHLORIDE IN 60 MIN
     Route: 042
     Dates: start: 20220815, end: 20220815
  2. SODIUM CHLORIDE [Suspect]
     Active Substance: SODIUM CHLORIDE
     Indication: Medication dilution
     Dosage: 2 AMPOULES DILUTED IN 200 ML OF SODIUM CHLORIDE IN 60 MIN
     Route: 042
     Dates: start: 20220815, end: 20220815

REACTIONS (7)
  - Hypothermia [Recovered/Resolved]
  - Peripheral ischaemia [Recovered/Resolved]
  - Abdominal pain [Recovered/Resolved]
  - Back pain [Recovered/Resolved]
  - Dyspnoea [Recovered/Resolved]
  - Asthenia [Recovered/Resolved]
  - Pallor [Recovered/Resolved]

NARRATIVE: CASE EVENT DATE: 20220815
